FAERS Safety Report 23450406 (Version 1)
Quarter: 2024Q1

REPORT INFORMATION
  Report Type: Spontaneous
  Country: US (occurrence: US)
  Receive Date: 20240129
  Receipt Date: 20240129
  Transmission Date: 20240410
  Serious: Yes (Other)
  Sender: FDA-Public Use
  Company Number: US-BEH-2024167759

PATIENT
  Age: 9 Year
  Sex: Male

DRUGS (2)
  1. ALBUMIN HUMAN [Suspect]
     Active Substance: ALBUMIN HUMAN
     Indication: Nephrotic syndrome
     Dosage: AUGMENTED DIURESIS
     Route: 065
  2. ALBUMIN HUMAN [Suspect]
     Active Substance: ALBUMIN HUMAN
     Indication: Diuretic therapy
     Dosage: 1000 MILLIGRAM/KILOGRAM EVERY 12 HOURS (AQUADEX)
     Route: 065

REACTIONS (1)
  - Pulmonary oedema [Unknown]
